FAERS Safety Report 6046703-7 (Version None)
Quarter: 2009Q1

REPORT INFORMATION
  Report Type: 
  Country: None (occurrence: None)
  Receive Date: 20090122
  Receipt Date: 20090113
  Transmission Date: 20090719
  Serious: Yes (Other)
  Sender: FDA-Public Use
  Company Number: BR-PFIZER INC-2008088920

PATIENT

DRUGS (1)
  1. DEPO-PROVERA [Suspect]
     Dosage: FIRST INJECTION
     Dates: start: 20020101

REACTIONS (6)
  - AMENORRHOEA [None]
  - BREAST CYST [None]
  - METRORRHAGIA [None]
  - NERVOUSNESS [None]
  - THYROID DISORDER [None]
  - WEIGHT DECREASED [None]
